FAERS Safety Report 6348599-2 (Version None)
Quarter: 2009Q3

REPORT INFORMATION
  Report Type: 
  Country: None (occurrence: None)
  Receive Date: 20090911
  Receipt Date: 20090902
  Transmission Date: 20100115
  Serious: Yes (Other)
  Sender: FDA-Public Use
  Company Number: FR-ROCHE-654125

PATIENT
  Sex: Female

DRUGS (12)
  1. VALIUM [Suspect]
     Indication: DRUG USE FOR UNKNOWN INDICATION
     Route: 048
     Dates: start: 20080828
  2. VALIUM [Suspect]
     Route: 048
     Dates: start: 20080923
  3. ANAFRANIL [Suspect]
     Indication: DRUG USE FOR UNKNOWN INDICATION
     Dosage: ROUTE: INTRAMUSCULAR, FORM: INJECTABLE SOLUTION
     Route: 050
     Dates: start: 20080910
  4. ANAFRANIL [Suspect]
     Dosage: ROUTE: ORAL
     Route: 050
     Dates: start: 20080919
  5. NOZINAN [Suspect]
     Indication: DRUG USE FOR UNKNOWN INDICATION
     Route: 048
     Dates: start: 20080910, end: 20080923
  6. HALDOL [Suspect]
     Indication: DRUG USE FOR UNKNOWN INDICATION
     Route: 048
     Dates: start: 20080826, end: 20080923
  7. LEPTICUR [Concomitant]
     Route: 048
     Dates: start: 20080825
  8. ELISOR [Concomitant]
     Dates: start: 20080826
  9. PULMICORT-100 [Concomitant]
     Dosage: ROUTE: RESPIRATORY ROUTE
     Dates: start: 20080910
  10. BRICANYL [Concomitant]
     Dosage: ROUTE: RESPIRATORY ROUTE
     Dates: start: 20080910
  11. ATROVENT [Concomitant]
     Dosage: ROUTE: RESPIRATORY ROUTE
     Dates: start: 20080910
  12. LEVOTHYROXINE SODIUM [Concomitant]
     Dosage: FOR A LONG TIME.

REACTIONS (2)
  - FALL [None]
  - MALAISE [None]
